FAERS Safety Report 21367520 (Version 1)
Quarter: 2022Q3

REPORT INFORMATION
  Report Type: Report from Study
  Country: DE (occurrence: DE)
  Receive Date: 20220923
  Receipt Date: 20220923
  Transmission Date: 20221027
  Serious: Yes (Hospitalization, Other)
  Sender: FDA-Public Use
  Company Number: DE-MYLANLABS-2022M1087451

PATIENT
  Sex: Female

DRUGS (8)
  1. METHOTREXATE [Suspect]
     Active Substance: METHOTREXATE
     Indication: Rheumatoid arthritis
     Dosage: UNIT DOSE : 10 MILLIGRAM ,  THERAPY END DATE : ASKU
     Dates: start: 20210118
  2. METHOTREXATE [Suspect]
     Active Substance: METHOTREXATE
     Dosage: UNIT DOSE : 10 MILLIGRAM ,  THERAPY END DATE : ASKU
     Dates: start: 20200720
  3. METHOTREXATE [Suspect]
     Active Substance: METHOTREXATE
     Dosage: UNIT DOSE : 10 MILLIGRAM ,  THERAPY END DATE : ASKU
     Dates: start: 20191210
  4. METHOTREXATE [Suspect]
     Active Substance: METHOTREXATE
     Dosage: UNIT DOSE : 10 MILLIGRAM ,  THERAPY END DATE : ASKU
     Dates: start: 20190806
  5. HYDROXYCHLOROQUINE SULFATE [Suspect]
     Active Substance: HYDROXYCHLOROQUINE SULFATE
     Indication: Rheumatoid arthritis
     Dosage: UNIT DOSE : 400  MILLIGRAM ,  THERAPY END DATE : ASKU
     Dates: start: 20190513
  6. HYDROXYCHLOROQUINE SULFATE [Suspect]
     Active Substance: HYDROXYCHLOROQUINE SULFATE
     Dosage: UNIT DOSE : 400  MILLIGRAM ,  THERAPY END DATE : ASKU
     Dates: start: 20191210
  7. HYDROXYCHLOROQUINE SULFATE [Suspect]
     Active Substance: HYDROXYCHLOROQUINE SULFATE
     Dosage: UNIT DOSE : 400  MILLIGRAM ,  THERAPY END DATE : ASKU
     Dates: start: 20190806
  8. RITUXIMAB [Suspect]
     Active Substance: RITUXIMAB
     Indication: Rheumatoid arthritis
     Dosage: UNIT DOSE : 1000 MILLIGRAM ,  THERAPY END DATE : ASKU
     Dates: start: 201910

REACTIONS (5)
  - Interstitial lung disease [Recovered/Resolved]
  - Rheumatoid arthritis [Recovered/Resolved]
  - Dyspnoea [Not Recovered/Not Resolved]
  - Nausea [Unknown]
  - Diarrhoea [Unknown]

NARRATIVE: CASE EVENT DATE: 20201103
